FAERS Safety Report 7033976-7 (Version None)
Quarter: 2010Q4

REPORT INFORMATION
  Report Type: 
  Country: None (occurrence: None)
  Receive Date: 20101005
  Receipt Date: 20100927
  Transmission Date: 20110411
  Serious: Yes (Other)
  Sender: FDA-Public Use
  Company Number: 019446

PATIENT
  Sex: Female
  Weight: 97.5 kg

DRUGS (7)
  1. XYZAL [Suspect]
     Indication: URTICARIA
     Dosage: (5 MG QD, EVERY MORNING ORAL)
     Route: 048
     Dates: start: 20100801
  2. DOXEPIN HCL [Concomitant]
  3. XANAX [Concomitant]
  4. SYNTHROID [Concomitant]
  5. PEPCID [Concomitant]
  6. WARFARIN SODIUM [Concomitant]
  7. CARDIZEM [Concomitant]

REACTIONS (3)
  - RETINAL TEAR [None]
  - THROMBOSIS [None]
  - URTICARIA [None]
